FAERS Safety Report 21955151 (Version 1)
Quarter: 2023Q1

REPORT INFORMATION
  Report Type: Spontaneous
  Country: US (occurrence: US)
  Receive Date: 20230206
  Receipt Date: 20230206
  Transmission Date: 20230418
  Serious: No
  Sender: FDA-Public Use
  Company Number: US-AUROBINDO-AUR-APL-2022-041865

PATIENT
  Age: 12 Month
  Sex: Male
  Weight: 10 kg

DRUGS (1)
  1. CEFDINIR [Suspect]
     Active Substance: CEFDINIR
     Indication: Ear infection
     Dosage: 3 MILLILITER, TWO TIMES A DAY
     Route: 048
     Dates: start: 20220930

REACTIONS (1)
  - Abdominal pain upper [Unknown]

NARRATIVE: CASE EVENT DATE: 20220930
